FAERS Safety Report 8281488-5 (Version None)
Quarter: 2012Q2

REPORT INFORMATION
  Report Type: 
  Country: None (occurrence: None)
  Receive Date: 20120413
  Receipt Date: 20120411
  Transmission Date: 20120825
  Serious: Yes (Other)
  Sender: FDA-Public Use
  Company Number: US-PFIZER INC-2012090180

PATIENT
  Sex: Female
  Weight: 78.912 kg

DRUGS (3)
  1. ZOLEDRONIC ACID [Concomitant]
  2. METAXALONE [Suspect]
     Indication: BONE DISORDER
     Dosage: 800 MG, QD
     Dates: start: 20120101
  3. REMICADE [Suspect]
     Indication: RHEUMATOID ARTHRITIS
     Dosage: UNK,ONCE EVERY 8 WEEKS
     Route: 042
     Dates: start: 20110922, end: 20111229

REACTIONS (2)
  - ABDOMINAL DISCOMFORT [None]
  - STENT PLACEMENT [None]
